FAERS Safety Report 8330694-X (Version None)
Quarter: 2012Q2

REPORT INFORMATION
  Report Type: 
  Country: None (occurrence: None)
  Receive Date: 20120502
  Receipt Date: 20120409
  Transmission Date: 20120825
  Serious: No
  Sender: FDA-Public Use
  Company Number: US-AMGEN-USASP2012022397

PATIENT
  Age: 60 Year
  Sex: Female

DRUGS (1)
  1. ENBREL [Suspect]
     Indication: ANKYLOSING SPONDYLITIS
     Dosage: 50 MG, QWK
     Dates: start: 20120101

REACTIONS (5)
  - IRRITABLE BOWEL SYNDROME [None]
  - HAEMORRHOIDS [None]
  - CANDIDIASIS [None]
  - CREPITATIONS [None]
  - GASTROOESOPHAGEAL REFLUX DISEASE [None]
